FAERS Safety Report 10075534 (Version 1)
Quarter: 2014Q2

REPORT INFORMATION
  Report Type: Spontaneous
  Country: US (occurrence: None)
  Receive Date: 20140411
  Receipt Date: 20140411
  Transmission Date: 20141212
  Serious: Yes (Hospitalization)
  Sender: FDA-Public Use
  Company Number: None

PATIENT
  Age: 11 Year
  Sex: Male
  Weight: 42.5 kg

DRUGS (2)
  1. PEG-L-ASPARAGINASE (PEGASPARGASE, ONCOSPAR) [Suspect]
     Dosage: GIVEN ON DAY 15 ONLY. DAY 43 NOT GIVEN
     Dates: start: 20140205
  2. LOVENOX [Concomitant]

REACTIONS (1)
  - Subdural haematoma [None]
